FAERS Safety Report 7656706-4 (Version None)
Quarter: 2011Q3

REPORT INFORMATION
  Report Type: 
  Country: None (occurrence: None)
  Receive Date: 20110729
  Receipt Date: 20110718
  Transmission Date: 20111222
  Serious: Yes (Other)
  Sender: FDA-Public Use
  Company Number: JPI-P-015912

PATIENT
  Age: 55 Year
  Sex: Female
  Weight: 81.6475 kg

DRUGS (5)
  1. THYROID MEDICATIONS [Concomitant]
  2. RALOXIFENE HCL [Concomitant]
  3. XYREM [Suspect]
     Indication: SLEEP DISORDER
     Dosage: 4 GM (2 IN 1 D),ORAL ; (4.5 GM),ORAL
     Route: 048
     Dates: start: 20030819
  4. ATORVASTATIN [Concomitant]
  5. VENLAFAXINE [Concomitant]

REACTIONS (3)
  - FALL [None]
  - SPINAL FRACTURE [None]
  - OSTEOPOROSIS [None]
